FAERS Safety Report 24411454 (Version 1)
Quarter: 2024Q4

REPORT INFORMATION
  Report Type: Spontaneous
  Country: US (occurrence: US)
  Receive Date: 20241008
  Receipt Date: 20241008
  Transmission Date: 20250115
  Serious: Yes (Life-Threatening, Hospitalization, Other)
  Sender: LUPIN
  Company Number: US-MLMSERVICE-20240918-PI193356-00030-1

PATIENT
  Age: 14 Year
  Sex: Male
  Weight: 101.5 kg

DRUGS (5)
  1. DEXTROAMPHETAMINE SULFATE [Suspect]
     Active Substance: DEXTROAMPHETAMINE SULFATE
     Indication: Product used for unknown indication
     Dosage: UNK (30 TABLETS)
     Route: 065
  2. MELOXICAM [Suspect]
     Active Substance: MELOXICAM
     Indication: Product used for unknown indication
     Dosage: UNK (2 TABLETS)
     Route: 065
  3. IBUPROFEN [Suspect]
     Active Substance: IBUPROFEN
     Indication: Abdominal pain
     Dosage: UNK
     Route: 065
  4. ASPIRIN [Suspect]
     Active Substance: ASPIRIN
     Indication: Product used for unknown indication
     Dosage: UNK (15 TO 20 TABLETS)
     Route: 065
  5. NICARDIPINE [Concomitant]
     Active Substance: NICARDIPINE
     Indication: Blood pressure abnormal
     Dosage: UNK (DRIP)
     Route: 065

REACTIONS (6)
  - Metabolic alkalosis [Unknown]
  - Hypokalaemia [Unknown]
  - Gastric ulcer [Unknown]
  - Ileal ulcer [Unknown]
  - Suicide attempt [Unknown]
  - Intentional overdose [Unknown]
